FAERS Safety Report 6378438-5 (Version None)
Quarter: 2009Q3

REPORT INFORMATION
  Report Type: 
  Country: None (occurrence: None)
  Receive Date: 20090926
  Receipt Date: 20090918
  Transmission Date: 20100115
  Serious: Yes (Other)
  Sender: FDA-Public Use
  Company Number: US-ALLERGAN-0913121US

PATIENT
  Age: 41 Year
  Sex: Female

DRUGS (3)
  1. BOTOX COSMETIC [Suspect]
     Indication: SKIN WRINKLING
     Dosage: 30 UNITS, SINGLE
     Route: 030
     Dates: start: 20090828, end: 20090828
  2. AZITHROMYCIN [Concomitant]
     Indication: LYME DISEASE
  3. MEPRON [Concomitant]
     Indication: LYME DISEASE

REACTIONS (11)
  - ANXIETY [None]
  - ASTHENIA [None]
  - DECREASED APPETITE [None]
  - EYELID PTOSIS [None]
  - HEADACHE [None]
  - HYPOAESTHESIA FACIAL [None]
  - INFLUENZA LIKE ILLNESS [None]
  - INSOMNIA [None]
  - LARYNGEAL DISORDER [None]
  - NAUSEA [None]
  - WEIGHT DECREASED [None]
